FAERS Safety Report 8319542 (Version 2)
Quarter: 2013Q4

REPORT INFORMATION
  Report Type: Spontaneous
  Country: US (occurrence: US)
  Receive Date: 20120103
  Receipt Date: 20131122
  Transmission Date: 20140711
  Serious: Yes (Hospitalization)
  Sender: FDA-Public Use
  Company Number: US-GLAXOSMITHKLINE-A0934390A

PATIENT
  Age: 66 Year
  Sex: Male

DRUGS (1)
  1. AVANDIA [Suspect]
     Indication: DIABETES MELLITUS
     Route: 048
     Dates: start: 2002, end: 2009

REACTIONS (3)
  - Cardiac failure congestive [Not Recovered/Not Resolved]
  - Heart valve replacement [Unknown]
  - Cardiac disorder [Unknown]
